FAERS Safety Report 6127025-2 (Version None)
Quarter: 2009Q1

REPORT INFORMATION
  Report Type: 
  Country: None (occurrence: None)
  Receive Date: 20090320
  Receipt Date: 20090309
  Transmission Date: 20090719
  Serious: Yes (Other)
  Sender: FDA-Public Use
  Company Number: SE-WYE-G03342309

PATIENT
  Sex: Male

DRUGS (1)
  1. EFFEXOR [Suspect]
     Indication: DEPRESSION
     Dosage: DOSE UNKNOWN
     Dates: end: 20080620

REACTIONS (4)
  - CARDIOMYOPATHY [None]
  - DYSPNOEA [None]
  - HEART RATE INCREASED [None]
  - PALPITATIONS [None]
